FAERS Safety Report 11259121 (Version 1)
Quarter: 2015Q3

REPORT INFORMATION
  Report Type: Spontaneous
  Country: FR (occurrence: FR)
  Receive Date: 20150710
  Receipt Date: 20150710
  Transmission Date: 20151125
  Serious: Yes (Hospitalization, Other)
  Sender: FDA-Public Use
  Company Number: FR-PFIZER INC-2015223572

PATIENT
  Age: 70 Year
  Sex: Male

DRUGS (9)
  1. ESOMEPRAZOLE [Concomitant]
     Active Substance: ESOMEPRAZOLE
     Dosage: 20 MG, 1X/DAY IN THE EVENING
  2. IMOVANE [Suspect]
     Active Substance: ZOPICLONE
     Dosage: 7.5 MG, 1X/DAY AT BEDTIME
     Route: 048
     Dates: start: 20150530, end: 20150616
  3. ABILIFY [Suspect]
     Active Substance: ARIPIPRAZOLE
     Dosage: 5 MG, 1X/DAY IN THE MORNING
     Route: 048
     Dates: start: 20150603, end: 20150612
  4. SEROPLEX [Suspect]
     Active Substance: ESCITALOPRAM OXALATE
     Dosage: 30MG, 1X/DAY IN THE MORNING
     Route: 048
     Dates: start: 20150525, end: 20150616
  5. SUXAMETHONIUM [Concomitant]
     Active Substance: SUCCINYLCHOLINE
     Indication: PREMEDICATION
     Dosage: UNK
     Dates: start: 20150610
  6. LYRICA [Suspect]
     Active Substance: PREGABALIN
     Dosage: 25 MG, 3X/DAY
     Route: 048
     Dates: start: 20150530, end: 20150616
  7. THIOPENTAL [Concomitant]
     Active Substance: THIOPENTAL
     Indication: PREMEDICATION
     Dosage: UNK
     Dates: start: 20150610
  8. LOXAPAC /00401801/ [Concomitant]
     Active Substance: LOXAPINE SUCCINATE
     Dosage: ^10-0-10-20 MG^, 3X/DAY
     Dates: start: 20150609, end: 20150612
  9. SERESTA [Suspect]
     Active Substance: OXAZEPAM
     Dosage: 10 MG, 3X/DAY
     Route: 048
     Dates: start: 20150409, end: 20150609

REACTIONS (2)
  - Drug reaction with eosinophilia and systemic symptoms [Recovered/Resolved]
  - Depression [Unknown]

NARRATIVE: CASE EVENT DATE: 20150612
